FAERS Safety Report 10667670 (Version 1)
Quarter: 2014Q4

REPORT INFORMATION
  Report Type: Spontaneous
  Country: FI (occurrence: FI)
  Receive Date: 20141222
  Receipt Date: 20141222
  Transmission Date: 20150529
  Serious: Yes (Hospitalization, Other)
  Sender: FDA-Public Use
  Company Number: FI-BANPHARM-20143298

PATIENT
  Age: 36 Year
  Sex: Female

DRUGS (4)
  1. VALPROIC ACID UNKNOWN PRODUCT [Suspect]
     Active Substance: VALPROIC ACID
     Indication: EPILEPSY
     Dosage: 900 MG, QD,
     Route: 048
  2. OXACARBAZEPINE [Concomitant]
  3. ENOXAPARIN [Concomitant]
     Active Substance: ENOXAPARIN
  4. PREGABALIN. [Concomitant]
     Active Substance: PREGABALIN

REACTIONS (12)
  - Hepatotoxicity [None]
  - Pneumonia [None]
  - Hepatic encephalopathy [Recovered/Resolved]
  - Renal failure [None]
  - Drug-induced liver injury [None]
  - Epilepsy [None]
  - Hepatic failure [Recovered/Resolved]
  - Overdose [None]
  - Liver transplant [None]
  - Death [None]
  - Toxicity to various agents [None]
  - Cardiac arrest [None]
